FAERS Safety Report 8987395 (Version 1)
Quarter: 2012Q4

REPORT INFORMATION
  Report Type: 
  Country: AR (occurrence: AR)
  Receive Date: 20121226
  Receipt Date: 20121226
  Transmission Date: 20130627
  Serious: Yes (Other)
  Sender: FDA-Public Use
  Company Number: AR-ROCHE-1173864

PATIENT
  Age: 77 Year
  Sex: Female

DRUGS (1)
  1. LUCENTIS [Suspect]
     Indication: MACULOPATHY
     Dosage: one every fifteen or twenty day
     Route: 042
     Dates: start: 2010

REACTIONS (4)
  - Maculopathy [Recovering/Resolving]
  - Disease progression [Recovering/Resolving]
  - Blindness [Recovering/Resolving]
  - Inappropriate schedule of drug administration [Unknown]
